FAERS Safety Report 16016203 (Version 3)
Quarter: 2019Q1

REPORT INFORMATION
  Report Type: Spontaneous
  Country: JP (occurrence: JP)
  Receive Date: 20190228
  Receipt Date: 20190328
  Transmission Date: 20190418
  Serious: Yes (Other)
  Sender: FDA-Public Use
  Company Number: JP-009507513-1902JPN002018J

PATIENT
  Age: 6 Decade
  Sex: Male
  Weight: 60 kg

DRUGS (5)
  1. BONALON [Suspect]
     Active Substance: ALENDRONATE SODIUM
     Dosage: UNK
     Route: 048
  2. PREDNISOLONE. [Concomitant]
     Active Substance: PREDNISOLONE
     Indication: CHRONIC GRAFT VERSUS HOST DISEASE
     Dosage: 5 MILLIGRAM
     Route: 065
  3. FLUDARABINE PHOSPHATE. [Concomitant]
     Active Substance: FLUDARABINE PHOSPHATE
     Indication: CHEMOTHERAPY
     Dosage: 180 MILLIGRAM/SQ. METER
  4. CICLOSPORIN [Concomitant]
     Active Substance: CYCLOSPORINE
     Indication: CHRONIC GRAFT VERSUS HOST DISEASE
     Dosage: 50 MILLIGRAM/DAY
     Route: 065
  5. BUSULFAN. [Concomitant]
     Active Substance: BUSULFAN
     Indication: CHEMOTHERAPY
     Dosage: 6.4 MILLIGRAM/KILOGRAM
     Route: 042

REACTIONS (1)
  - Chronic kidney disease [Unknown]
